FAERS Safety Report 12101297 (Version 3)
Quarter: 2016Q2

REPORT INFORMATION
  Report Type: Spontaneous
  Country: US (occurrence: US)
  Receive Date: 20160222
  Receipt Date: 20160415
  Transmission Date: 20160815
  Serious: Yes (Other)
  Sender: FDA-Public Use
  Company Number: US-BAYER-2016-029553

PATIENT
  Age: 29 Year
  Sex: Female
  Weight: 79.37 kg

DRUGS (2)
  1. GADAVIST [Suspect]
     Active Substance: GADOBUTROL
     Indication: NUCLEAR MAGNETIC RESONANCE IMAGING BRAIN
     Dosage: 10 ML, UNK
     Dates: start: 20160212, end: 20160212
  2. GADAVIST [Suspect]
     Active Substance: GADOBUTROL
     Indication: HALLUCINATION

REACTIONS (8)
  - Hypoaesthesia [None]
  - Headache [None]
  - Tachycardia [None]
  - Emotional distress [None]
  - Feeling abnormal [None]
  - Dizziness [None]
  - Nausea [None]
  - Hypertension [None]

NARRATIVE: CASE EVENT DATE: 20160212
